FAERS Safety Report 9157954 (Version 1)
Quarter: 2013Q1

REPORT INFORMATION
  Report Type: Spontaneous
  Country: AR (occurrence: None)
  Receive Date: 20130213
  Receipt Date: 20130213
  Transmission Date: 20140127
  Serious: Yes (Other)
  Sender: FDA-Public Use
  Company Number: 2013-000367

PATIENT
  Age: 68 Year
  Sex: Female

DRUGS (4)
  1. ACTONEL [Suspect]
     Route: 048
     Dates: end: 200507
  2. PAMIDRONATE [Suspect]
     Dates: start: 1993, end: 1994
  3. ALENDRONATE (ALENDRONATE SODIUM) [Suspect]
     Dates: start: 200307
  4. IBANDRONATE [Suspect]
     Dates: start: 200705

REACTIONS (4)
  - Atypical femur fracture [None]
  - Bone disorder [None]
  - Femur fracture [None]
  - Fracture nonunion [None]
